FAERS Safety Report 18113852 (Version 2)
Quarter: 2021Q2

REPORT INFORMATION
  Report Type: Spontaneous
  Country: US (occurrence: US)
  Receive Date: 20200805
  Receipt Date: 20210408
  Transmission Date: 20210717
  Serious: Yes (Other)
  Sender: FDA-Public Use
  Company Number: US-GLAXOSMITHKLINE-US2020150810

PATIENT
  Sex: Female

DRUGS (6)
  1. ZANTAC [Suspect]
     Active Substance: RANITIDINE HYDROCHLORIDE
     Indication: OESOPHAGEAL RUPTURE
     Dosage: 150 MG, QD
     Route: 065
     Dates: start: 198706, end: 201903
  2. RANITIDINE. [Suspect]
     Active Substance: RANITIDINE
     Indication: OESOPHAGEAL RUPTURE
     Dosage: 150 MG, QD
     Route: 065
     Dates: start: 199701, end: 201901
  3. ZANTAC [Suspect]
     Active Substance: RANITIDINE HYDROCHLORIDE
     Route: 065
  4. RANITIDINE. [Suspect]
     Active Substance: RANITIDINE
     Indication: OESOPHAGEAL RUPTURE
     Dosage: 150 MG, QD
     Route: 065
     Dates: start: 199701, end: 201901
  5. ZANTAC [Suspect]
     Active Substance: RANITIDINE HYDROCHLORIDE
     Indication: OESOPHAGEAL RUPTURE
     Dosage: 150 MG, QD
     Route: 065
     Dates: start: 198706, end: 201903
  6. RANITIDINE. [Suspect]
     Active Substance: RANITIDINE
     Route: 065

REACTIONS (2)
  - Uterine cancer [Unknown]
  - Ovarian cancer [Unknown]
